FAERS Safety Report 5216223-8 (Version None)
Quarter: 2007Q1

REPORT INFORMATION
  Report Type: 
  Country: None (occurrence: None)
  Receive Date: 20070118
  Receipt Date: 20070102
  Transmission Date: 20070707
  Serious: Yes (Hospitalization)
  Sender: FDA-Public Use
  Company Number: 234817

PATIENT
  Age: 56 Year
  Sex: Female

DRUGS (5)
  1. AVASTIN [Suspect]
     Indication: COLON CANCER
     Dosage: 5 MG/KG, Q2W, INTRAVENOUS
     Route: 042
     Dates: start: 20060405, end: 20061204
  2. OXALIPLATIN [Suspect]
     Indication: COLON CANCER
     Dosage: 85 MG/M2, Q2W, INTRAVENOUS
     Route: 042
     Dates: start: 20060405
  3. FLUOROURACIL [Suspect]
     Indication: COLON CANCER
     Dosage: SEE IMAGE
     Route: 040
     Dates: start: 20060405
  4. FLUOROURACIL [Suspect]
     Indication: COLON CANCER
     Dosage: SEE IMAGE
     Route: 040
     Dates: start: 20060405
  5. LEUCOVORIN CALCIUM [Suspect]
     Indication: COLON CANCER
     Dosage: 400 MG/M2, Q2W, INTRAVENOUS
     Route: 042
     Dates: start: 20060405

REACTIONS (12)
  - ASPARTATE AMINOTRANSFERASE INCREASED [None]
  - GASTROINTESTINAL PERFORATION [None]
  - HYDRONEPHROSIS [None]
  - HYDROURETER [None]
  - HYPERKALAEMIA [None]
  - HYPOPHOSPHATAEMIA [None]
  - ILEUS [None]
  - INFECTION [None]
  - LEUKOCYTOSIS [None]
  - METASTASES TO LIVER [None]
  - POSTOPERATIVE WOUND INFECTION [None]
  - RENAL FAILURE [None]
